FAERS Safety Report 23073791 (Version 1)
Quarter: 2023Q4

REPORT INFORMATION
  Report Type: Report from Study
  Country: FR (occurrence: FR)
  Receive Date: 20231017
  Receipt Date: 20231017
  Transmission Date: 20240109
  Serious: Yes (Other)
  Sender: FDA-Public Use
  Company Number: FR-UCBSA-2023049631

PATIENT
  Age: 19 Month
  Sex: Male
  Weight: 9.1 kg

DRUGS (6)
  1. FINTEPLA [Suspect]
     Active Substance: FENFLURAMINE
     Indication: Severe myoclonic epilepsy of infancy
     Dosage: 0.1 MILLIGRAM/KILOGRAM, 2X/DAY (BID)
     Dates: start: 20220118, end: 2022
  2. FINTEPLA [Suspect]
     Active Substance: FENFLURAMINE
     Dosage: 0.2 MILLIGRAM/KILOGRAM, 2X/DAY (BID)
     Dates: start: 20220923
  3. FINTEPLA [Suspect]
     Active Substance: FENFLURAMINE
     Dosage: 0.3 MILLIGRAM/KILOGRAM, 2X/DAY (BID)
     Dates: start: 20221017
  4. CLOBAZAM [Concomitant]
     Active Substance: CLOBAZAM
     Indication: Product used for unknown indication
     Dosage: 0.25 MILLIGRAM/KILOGRAM PER DAY
     Dates: start: 20220401
  5. DIACOMIT [Concomitant]
     Active Substance: STIRIPENTOL
     Indication: Product used for unknown indication
     Dosage: 50 MILLIGRAM/KILOGRAM PER DAY
     Dates: start: 20220114, end: 20221001
  6. VALPROATE [Concomitant]
     Active Substance: VALPROIC ACID
     Indication: Product used for unknown indication
     Dosage: 26 MILLIGRAM/KILOGRAM PER DAY
     Dates: start: 202107

REACTIONS (4)
  - Seizure [Unknown]
  - Status epilepticus [Unknown]
  - Decreased appetite [Unknown]
  - Gastrointestinal disorder [Unknown]

NARRATIVE: CASE EVENT DATE: 20220101
